FAERS Safety Report 13572369 (Version 1)
Quarter: 2017Q2

REPORT INFORMATION
  Report Type: Spontaneous
  Country: US (occurrence: US)
  Receive Date: 20170523
  Receipt Date: 20170523
  Transmission Date: 20170830
  Serious: No
  Sender: FDA-Public Use
  Company Number: US-JNJFOC-20170328685

PATIENT
  Age: 85 Year
  Sex: Female
  Weight: 63 kg

DRUGS (9)
  1. AZOPT [Concomitant]
     Active Substance: BRINZOLAMIDE
  2. PROLIA [Concomitant]
     Active Substance: DENOSUMAB
  3. ALLOPURINOL. [Concomitant]
     Active Substance: ALLOPURINOL
  4. CALCIUM CITRATE WITH VITAMIN D3 [Concomitant]
  5. ZOCOR [Concomitant]
     Active Substance: SIMVASTATIN
  6. CYANOCOBALAMIN. [Concomitant]
     Active Substance: CYANOCOBALAMIN
  7. IMBRUVICA [Suspect]
     Active Substance: IBRUTINIB
     Indication: MONOCLONAL GAMMOPATHY
     Route: 048
     Dates: start: 20160126
  8. IMBRUVICA [Suspect]
     Active Substance: IBRUTINIB
     Indication: MONOCLONAL GAMMOPATHY
     Route: 048
     Dates: start: 20170307
  9. LATANOPROST. [Concomitant]
     Active Substance: LATANOPROST

REACTIONS (4)
  - Off label use [Unknown]
  - Intentional product use issue [Not Recovered/Not Resolved]
  - Product use in unapproved indication [Unknown]
  - Drug ineffective for unapproved indication [Unknown]

NARRATIVE: CASE EVENT DATE: 20160126
